FAERS Safety Report 4677966-8 (Version None)
Quarter: 2005Q1

REPORT INFORMATION
  Report Type: 
  Country: None (occurrence: None)
  Receive Date: 20050311
  Receipt Date: 20050311
  Transmission Date: 20050727
  Serious: Yes (Other)
  Sender: FDA-Public Use
  Company Number: None

PATIENT
  Sex: Female
  Weight: 31.6611 kg

DRUGS (3)
  1. METHYLPHENIDATE HCL [Suspect]
     Indication: ATTENTION DEFICIT/HYPERACTIVITY DISORDER
     Dosage: 20 MG 8A, 10:30A, 1PM, 3:30 PM
     Dates: start: 20040901
  2. TEGRETOL [Concomitant]
  3. INSULIN [Concomitant]

REACTIONS (3)
  - ABNORMAL BEHAVIOUR [None]
  - IMPULSIVE BEHAVIOUR [None]
  - PHARMACEUTICAL PRODUCT COMPLAINT [None]
